FAERS Safety Report 19821076 (Version 1)
Quarter: 2021Q3

REPORT INFORMATION
  Report Type: Spontaneous
  Country: DE (occurrence: DE)
  Receive Date: 20210913
  Receipt Date: 20210913
  Transmission Date: 20211014
  Serious: Yes (Other)
  Sender: FDA-Public Use
  Company Number: DE-TEVA-2021-DE-1950255

PATIENT
  Age: 0 Year
  Sex: Male

DRUGS (7)
  1. COPAXONE [Suspect]
     Active Substance: GLATIRAMER ACETATE
     Indication: MULTIPLE SCLEROSIS
     Dosage: 40 [MG / D (3X / WEEK)] 3 SEPARATED DOSES , UNIT DOSE : 120 MG
     Route: 064
  2. PREGABALIN. [Concomitant]
     Active Substance: PREGABALIN
     Indication: NEURALGIA
     Dosage: 100 MILLIGRAM DAILY; 100 [MG / D (2X50)]
     Route: 064
     Dates: start: 20191209, end: 20200909
  3. CHLORPROTHIXENE [Concomitant]
     Active Substance: CHLORPROTHIXENE
     Indication: ANXIETY DISORDER
     Dosage: 25 MILLIGRAM DAILY;
     Route: 064
     Dates: start: 20191209, end: 20200120
  4. SIRDALUD 4 MG [Concomitant]
     Indication: PRODUCT USED FOR UNKNOWN INDICATION
     Dosage: 4 MILLIGRAM DAILY;
     Route: 064
     Dates: start: 20191209, end: 20200120
  5. COVAXIS [Concomitant]
     Indication: IMMUNISATION
     Route: 064
     Dates: start: 20200616, end: 20200616
  6. SERTRALINE [Concomitant]
     Active Substance: SERTRALINE HYDROCHLORIDE
     Indication: DEPRESSION
     Dosage: 200 MILLIGRAM DAILY; 200 [MG / D (2X100)]
     Route: 064
     Dates: start: 20191209, end: 20200909
  7. BISOHEXAL [Concomitant]
     Active Substance: BISOPROLOL FUMARATE
     Indication: TACHYCARDIA
     Dosage: 2.5 MILLIGRAM DAILY;
     Route: 064
     Dates: start: 20191209, end: 20200909

REACTIONS (2)
  - Sepsis neonatal [Recovered/Resolved]
  - Foetal exposure during pregnancy [Unknown]

NARRATIVE: CASE EVENT DATE: 20191209
